FAERS Safety Report 4976333-7 (Version None)
Quarter: 2006Q2

REPORT INFORMATION
  Report Type: 
  Country: None (occurrence: None)
  Receive Date: 20060412
  Receipt Date: 20060329
  Transmission Date: 20061013
  Serious: Yes (Hospitalization, Other)
  Sender: FDA-Public Use
  Company Number: 2006BI004552

PATIENT
  Age: 56 Year
  Sex: Female
  Weight: 115.6672 kg

DRUGS (2)
  1. AVONEX [Suspect]
     Indication: MULTIPLE SCLEROSIS
     Dosage: 30 UG; QW; IM
     Route: 030
     Dates: start: 19981001, end: 20030101
  2. AVONEX [Suspect]
     Indication: MULTIPLE SCLEROSIS
     Dosage: 30 UG; QW; IM
     Route: 030
     Dates: start: 20030101, end: 20060201

REACTIONS (4)
  - COLITIS ULCERATIVE [None]
  - HEPATOMEGALY [None]
  - MYOCARDIAL INFARCTION [None]
  - UNEVALUABLE EVENT [None]
